FAERS Safety Report 9379143 (Version 1)
Quarter: 2013Q3

REPORT INFORMATION
  Report Type: Spontaneous
  Country: US (occurrence: US)
  Receive Date: 20130702
  Receipt Date: 20130702
  Transmission Date: 20140515
  Serious: No
  Sender: FDA-Public Use
  Company Number: US-BAYER-2013-079435

PATIENT
  Sex: Male

DRUGS (4)
  1. BETASERON [Suspect]
     Dosage: 0.3 MG, UNK
  2. OXYBUTYNIN [Concomitant]
     Dosage: 5 MG, UNK
  3. LOSARTAN [Concomitant]
     Dosage: 25 MG, UNK
  4. FISH OIL [Concomitant]

REACTIONS (2)
  - Hepatic enzyme increased [Unknown]
  - Drug ineffective [None]
